FAERS Safety Report 7759489-2 (Version None)
Quarter: 2011Q3

REPORT INFORMATION
  Report Type: 
  Country: None (occurrence: None)
  Receive Date: 20110919
  Receipt Date: 20110919
  Transmission Date: 20111222
  Serious: Yes (Hospitalization)
  Sender: FDA-Public Use
  Company Number: None

PATIENT
  Age: 72 Year
  Sex: Female
  Weight: 56.699 kg

DRUGS (1)
  1. DICYCLOMINE [Suspect]
     Indication: IRRITABLE BOWEL SYNDROME
     Dosage: 10MG
     Route: 048
     Dates: start: 20110917, end: 20110923

REACTIONS (11)
  - VOMITING [None]
  - FEELING ABNORMAL [None]
  - MALAISE [None]
  - APHAGIA [None]
  - SURGERY [None]
  - ABDOMINAL PAIN UPPER [None]
  - DRY MOUTH [None]
  - NAUSEA [None]
  - BLOOD PRESSURE INCREASED [None]
  - TREMOR [None]
  - DYSPNOEA [None]
